FAERS Safety Report 14122457 (Version 2)
Quarter: 2018Q1

REPORT INFORMATION
  Report Type: Spontaneous
  Country: AU (occurrence: AU)
  Receive Date: 20171024
  Receipt Date: 20180302
  Transmission Date: 20180508
  Serious: Yes (Death, Hospitalization, Other)
  Sender: FDA-Public Use
  Company Number: AU-B.I. PHARMACEUTICALS,INC./RIDGEFIELD-2017-BI-053999

PATIENT
  Age: 55 Year
  Sex: Female

DRUGS (1)
  1. PRADAXA [Suspect]
     Active Substance: DABIGATRAN ETEXILATE MESYLATE
     Indication: ATRIAL FIBRILLATION
     Route: 065
     Dates: start: 201705

REACTIONS (8)
  - Death [Fatal]
  - Metastases to lung [Unknown]
  - Craniotomy [Fatal]
  - Cerebral haematoma [Unknown]
  - Metastases to central nervous system [Unknown]
  - Haemorrhage [Unknown]
  - Brain midline shift [Unknown]
  - Hemiparesis [Unknown]
